FAERS Safety Report 5598793-3 (Version None)
Quarter: 2008Q1

REPORT INFORMATION
  Report Type: 
  Country: None (occurrence: None)
  Receive Date: 20080122
  Receipt Date: 20080114
  Transmission Date: 20080703
  Serious: Yes (Other)
  Sender: FDA-Public Use
  Company Number: GB-RANBAXY-2008RR-12587

PATIENT

DRUGS (2)
  1. ISOTRETINOIN [Suspect]
     Indication: ACNE
     Dosage: 20 MG, UNK
     Route: 048
     Dates: start: 20071007, end: 20071116
  2. MARVELON [Concomitant]
     Indication: CONTRACEPTION
     Dosage: 1 DF, UNK
     Route: 048
     Dates: start: 20050901

REACTIONS (6)
  - DIARRHOEA HAEMORRHAGIC [None]
  - ECZEMA [None]
  - HEADACHE [None]
  - NAUSEA [None]
  - VISION BLURRED [None]
  - VOMITING [None]
